FAERS Safety Report 9974109 (Version 1)
Quarter: 2014Q1

REPORT INFORMATION
  Report Type: Spontaneous
  Country: US (occurrence: None)
  Receive Date: 20140127
  Receipt Date: 20140127
  Transmission Date: 20141002
  Serious: No
  Sender: FDA-Public Use
  Company Number: 1265677

PATIENT
  Age: 61 Year
  Sex: Female

DRUGS (7)
  1. RITUXIMAB [Suspect]
     Indication: RHEUMATOID ARTHRITIS
     Dosage: 1 IN 4 MINUTES
     Route: 042
  2. LYRICA (PREGAMBLIN) [Concomitant]
  3. FLEXERIL (UNITED STATES) (CYCLOBENZAPRINE HYDROCHLORIDE) [Concomitant]
  4. CLARITIN (LORATIDINE) [Concomitant]
  5. IMODIUM (LOPERAMIDE YDROCHLORIDE) [Concomitant]
  6. BENADRYL (UNITED STATES) (DIPHENHYDRAMINE HYDROCHLORIDE) [Concomitant]
  7. TYLENOL (PARACETAMOL) [Concomitant]

REACTIONS (5)
  - Diarrhoea [None]
  - Abdominal pain [None]
  - Flushing [None]
  - Pruritus [None]
  - Oedema [None]
